FAERS Safety Report 4978167-6 (Version None)
Quarter: 2006Q2

REPORT INFORMATION
  Report Type: 
  Country: None (occurrence: None)
  Receive Date: 20060420
  Receipt Date: 20051130
  Transmission Date: 20061013
  Serious: Yes (Other)
  Sender: FDA-Public Use
  Company Number: US-ROCHE-427207

PATIENT
  Age: 23 Year
  Sex: Male
  Weight: 86.6 kg

DRUGS (4)
  1. ACCUTANE [Suspect]
     Route: 048
     Dates: start: 19980422, end: 19980513
  2. ACCUTANE [Suspect]
     Dosage: IT WAS REPORTED THAT THE PATIENT WAS TAKING ACCUTANE 40 MG TID, AND ACCUTANE WAS THEN DECREASED TO +
     Route: 048
     Dates: start: 19980513, end: 19980617
  3. ACCUTANE [Suspect]
     Route: 048
     Dates: start: 19980617, end: 19980808
  4. ACCUTANE [Suspect]
     Route: 048
     Dates: start: 19980808, end: 19980920

REACTIONS (37)
  - ALANINE AMINOTRANSFERASE INCREASED [None]
  - ANAEMIA [None]
  - ARTHRALGIA [None]
  - ARTHRITIS [None]
  - ASPARTATE AMINOTRANSFERASE INCREASED [None]
  - BLOOD ALBUMIN DECREASED [None]
  - BLOOD PHOSPHORUS DECREASED [None]
  - BOWEL MOVEMENT IRREGULARITY [None]
  - CHEILITIS [None]
  - COLITIS ULCERATIVE [None]
  - COLONIC POLYP [None]
  - CROHN'S DISEASE [None]
  - DECREASED APPETITE [None]
  - DEPRESSION [None]
  - DIZZINESS [None]
  - ERYTHEMA [None]
  - FATIGUE [None]
  - GASTROINTESTINAL DISORDER [None]
  - GASTROINTESTINAL INJURY [None]
  - HAEMORRHAGE [None]
  - INFLAMMATION [None]
  - INFLAMMATORY BOWEL DISEASE [None]
  - JOINT INJURY [None]
  - LEUKOCYTOSIS [None]
  - LYMPHOCYTE COUNT DECREASED [None]
  - MONOCYTE PERCENTAGE INCREASED [None]
  - MUSCLE INJURY [None]
  - MYALGIA [None]
  - NASAL DRYNESS [None]
  - OEDEMA PERIPHERAL [None]
  - PAIN [None]
  - PAINFUL DEFAECATION [None]
  - PHARYNGOLARYNGEAL PAIN [None]
  - PLATELET COUNT INCREASED [None]
  - PYREXIA [None]
  - TONSILLITIS [None]
  - WEIGHT DECREASED [None]
